FAERS Safety Report 24238430 (Version 1)
Quarter: 2024Q3

REPORT INFORMATION
  Report Type: Report from Study
  Country: CA (occurrence: CA)
  Receive Date: 20240822
  Receipt Date: 20240822
  Transmission Date: 20241016
  Serious: Yes (Other)
  Sender: BIOCON
  Company Number: CA-BIOCON BIOLOGICS LIMITED-BBL2024006036

PATIENT

DRUGS (1)
  1. HULIO [Suspect]
     Active Substance: ADALIMUMAB-FKJP
     Indication: Crohn^s disease
     Dosage: 40 MILLIGRAM, QW (1 EVERY 1 WEEK) (SOLUTION)
     Route: 058

REACTIONS (11)
  - Crohn^s disease [Unknown]
  - Thrombosis [Unknown]
  - General physical health deterioration [Unknown]
  - Illness [Unknown]
  - Anal fissure [Unknown]
  - Haemorrhoids [Unknown]
  - Abdominal mass [Unknown]
  - Diarrhoea [Unknown]
  - Fatigue [Unknown]
  - Abdominal pain [Unknown]
  - Asthenia [Unknown]
